FAERS Safety Report 4750286-9 (Version None)
Quarter: 2005Q3

REPORT INFORMATION
  Report Type: 
  Country: None (occurrence: None)
  Receive Date: 20050823
  Receipt Date: 20050801
  Transmission Date: 20060218
  Serious: Yes (Disabling)
  Sender: FDA-Public Use
  Company Number: GB-AMGEN-UK144933

PATIENT
  Sex: Male

DRUGS (1)
  1. ARANESP [Suspect]
     Indication: ANAEMIA OF MALIGNANT DISEASE
     Route: 058
     Dates: start: 20041101, end: 20050622

REACTIONS (3)
  - APLASIA PURE RED CELL [None]
  - DRUG TOLERANCE DECREASED [None]
  - THERAPY NON-RESPONDER [None]
